FAERS Safety Report 12772292 (Version 1)
Quarter: 2016Q3

REPORT INFORMATION
  Report Type: Spontaneous
  Country: US (occurrence: US)
  Receive Date: 20160922
  Receipt Date: 20160922
  Transmission Date: 20161109
  Serious: No
  Sender: FDA-Public Use
  Company Number: US-DUSA PHARMACEUTICALS, INC.-1057589

PATIENT
  Age: 38 Year
  Sex: Male

DRUGS (1)
  1. LEVULAN KERASTICK [Suspect]
     Active Substance: AMINOLEVULINIC ACID HYDROCHLORIDE
     Indication: ACTINIC KERATOSIS
     Route: 061

REACTIONS (5)
  - Application site erythema [Recovered/Resolved]
  - Application site pustules [Recovered/Resolved]
  - Application site scar [Recovered/Resolved with Sequelae]
  - Application site scab [Recovered/Resolved]
  - Application site pain [Recovered/Resolved]
